FAERS Safety Report 8200172-7 (Version None)
Quarter: 2012Q1

REPORT INFORMATION
  Report Type: 
  Country: None (occurrence: None)
  Receive Date: 20120306
  Receipt Date: 20120222
  Transmission Date: 20120608
  Serious: Yes (Death)
  Sender: FDA-Public Use
  Company Number: IMP_05759_2012

PATIENT
  Age: 84 Year
  Sex: Male

DRUGS (1)
  1. METFORMIN HCL [Suspect]
     Indication: TYPE 2 DIABETES MELLITUS
     Dosage: (850 MG BID ORAL);

REACTIONS (5)
  - RENAL IMPAIRMENT [None]
  - METABOLIC DISORDER [None]
  - LACTIC ACIDOSIS [None]
  - SHOCK [None]
  - MULTI-ORGAN FAILURE [None]
